FAERS Safety Report 12223096 (Version 2)
Quarter: 2016Q2

REPORT INFORMATION
  Report Type: Spontaneous
  Country: AR (occurrence: AR)
  Receive Date: 20160330
  Receipt Date: 20160401
  Transmission Date: 20160815
  Serious: Yes (Other)
  Sender: FDA-Public Use
  Company Number: AR-JNJFOC-20160322008

PATIENT
  Sex: Female
  Weight: 55 kg

DRUGS (1)
  1. TOPAMAC [Suspect]
     Active Substance: TOPIRAMATE
     Indication: MIGRAINE PROPHYLAXIS
     Dosage: 1 TABLET AT NIGHT
     Route: 048

REACTIONS (13)
  - Abasia [Unknown]
  - Hypertension [Unknown]
  - Neuralgia [Unknown]
  - Anger [Unknown]
  - Insomnia [Unknown]
  - Motor dysfunction [Unknown]
  - Tachycardia [Unknown]
  - Weight decreased [Unknown]
  - Hypotension [Unknown]
  - Deafness [Unknown]
  - Sensory loss [Unknown]
  - Vision blurred [Unknown]
  - Syncope [Unknown]
